FAERS Safety Report 5128131-1 (Version None)
Quarter: 2006Q4

REPORT INFORMATION
  Report Type: 
  Country: None (occurrence: None)
  Receive Date: 20061011
  Receipt Date: 20060925
  Transmission Date: 20070319
  Serious: Yes (Hospitalization)
  Sender: FDA-Public Use
  Company Number: 230555

PATIENT
  Age: 44 Year
  Sex: Female

DRUGS (4)
  1. HERCEPTIN [Suspect]
     Indication: BREAST CANCER
     Dosage: Q3W, INTRAVENOUS
     Route: 042
  2. DICLOFENAC SODIUM [Concomitant]
  3. LETROZOLE [Concomitant]
  4. OXYCONTIN [Concomitant]

REACTIONS (3)
  - BRADYCARDIA [None]
  - INFECTION [None]
  - NEUTROPENIA [None]
